FAERS Safety Report 15634093 (Version 1)
Quarter: 2018Q4

REPORT INFORMATION
  Report Type: Spontaneous
  Country: US (occurrence: US)
  Receive Date: 20181119
  Receipt Date: 20181119
  Transmission Date: 20190205
  Serious: No
  Sender: FDA-Public Use
  Company Number: US-PFIZER INC-2018470882

PATIENT
  Age: 51 Year
  Sex: Male

DRUGS (1)
  1. XELJANZ XR [Suspect]
     Active Substance: TOFACITINIB CITRATE
     Dosage: 11 MG, UNK
     Dates: start: 201809, end: 20181029

REACTIONS (5)
  - Abdominal pain upper [Unknown]
  - Renal pain [Unknown]
  - Pollakiuria [Unknown]
  - Tongue discomfort [Unknown]
  - Oral discomfort [Unknown]
